FAERS Safety Report 8384430-1 (Version None)
Quarter: 2012Q2

REPORT INFORMATION
  Report Type: 
  Country: None (occurrence: None)
  Receive Date: 20120524
  Receipt Date: 20120516
  Transmission Date: 20120825
  Serious: Yes (Hospitalization)
  Sender: FDA-Public Use
  Company Number: CA-GLAXOSMITHKLINE-A0977785A

PATIENT
  Sex: Female
  Weight: 105 kg

DRUGS (9)
  1. MONOPRIL [Concomitant]
     Dosage: 10MG PER DAY
     Route: 065
  2. COD LIVER OIL [Concomitant]
  3. ADVAIR DISKUS 100/50 [Suspect]
     Indication: ASTHMA
     Dosage: 1PUFF TWICE PER DAY
     Route: 055
     Dates: start: 19960101
  4. SPIRIVA [Concomitant]
     Route: 065
  5. ALBUTEROL [Concomitant]
     Route: 065
  6. CYMBALTA [Concomitant]
     Dosage: 60MG PER DAY
     Route: 065
  7. VITAMIN B-12 [Concomitant]
  8. VITAMIN D [Concomitant]
  9. ZOPICLONE [Concomitant]
     Dosage: 14MG AT NIGHT
     Route: 065

REACTIONS (9)
  - CHRONIC OBSTRUCTIVE PULMONARY DISEASE [None]
  - FOREIGN BODY SENSATION IN EYES [None]
  - DRY EYE [None]
  - MUSCLE SPASMS [None]
  - CATARACT [None]
  - ERYTHEMA [None]
  - VISION BLURRED [None]
  - LUNG NEOPLASM MALIGNANT [None]
  - DIPLOPIA [None]
